FAERS Safety Report 26173093 (Version 1)
Quarter: 2025Q4

REPORT INFORMATION
  Report Type: Spontaneous
  Country: EU (occurrence: EU)
  Receive Date: 20251218
  Receipt Date: 20251218
  Transmission Date: 20260117
  Serious: Yes (Other)
  Sender: JOHNSON AND JOHNSON
  Company Number: EU-JNJFOC-20251217588

PATIENT
  Sex: Male

DRUGS (2)
  1. TREMFYA [Suspect]
     Active Substance: GUSELKUMAB
     Indication: Colitis ulcerative
  2. TREMFYA [Suspect]
     Active Substance: GUSELKUMAB
     Indication: Renal failure

REACTIONS (3)
  - Haematochezia [Unknown]
  - Diarrhoea [Unknown]
  - Therapeutic product effect decreased [Unknown]
